FAERS Safety Report 23677212 (Version 1)
Quarter: 2024Q1

REPORT INFORMATION
  Report Type: Spontaneous
  Country: US (occurrence: US)
  Receive Date: 20240327
  Receipt Date: 20240327
  Transmission Date: 20240409
  Serious: No
  Sender: FDA-Public Use
  Company Number: US-TEVA-VS-3153845

PATIENT
  Age: 48 Year
  Sex: Male

DRUGS (5)
  1. FLUVOXAMINE MALEATE [Suspect]
     Active Substance: FLUVOXAMINE MALEATE
     Indication: Obsessive-compulsive disorder
     Route: 065
     Dates: start: 20240112
  2. RELYTE [Concomitant]
  3. REMICADE [Concomitant]
     Active Substance: INFLIXIMAB
  4. TEGRETOL [Concomitant]
     Active Substance: CARBAMAZEPINE
  5. HYDROXYZINE [Concomitant]
     Active Substance: HYDROXYZINE HYDROCHLORIDE

REACTIONS (7)
  - Somnolence [Unknown]
  - Asthenia [Unknown]
  - Blood sodium decreased [Unknown]
  - Fatigue [Unknown]
  - Dizziness [Unknown]
  - Fatigue [Unknown]
  - Muscle tightness [Unknown]
